FAERS Safety Report 5019383-7 (Version None)
Quarter: 2006Q2

REPORT INFORMATION
  Report Type: 
  Country: None (occurrence: None)
  Receive Date: 20060531
  Receipt Date: 20060525
  Transmission Date: 20061013
  Serious: Yes (Hospitalization, Other)
  Sender: FDA-Public Use
  Company Number: 200610654GDS

PATIENT
  Sex: Male

DRUGS (6)
  1. CIPRO [Suspect]
     Indication: HAEMATOSPERMIA
     Dosage: 1000MG, TOTAL DAILY; ORAL
     Route: 048
  2. CIPRO [Suspect]
     Indication: TESTICULAR PAIN
     Dosage: 1000MG, TOTAL DAILY; ORAL
     Route: 048
  3. GABAPENTIN [Concomitant]
  4. TOPIRAMATE [Concomitant]
  5. CLONAZEPAM [Concomitant]
  6. MORPHINE [Concomitant]

REACTIONS (10)
  - ASTHENIA [None]
  - CONFUSIONAL STATE [None]
  - FALL [None]
  - JOINT DISLOCATION [None]
  - JOINT SWELLING [None]
  - NAUSEA [None]
  - NECK PAIN [None]
  - PARALYSIS [None]
  - RIB FRACTURE [None]
  - SHOULDER PAIN [None]
